FAERS Safety Report 5349798-9 (Version None)
Quarter: 2007Q2

REPORT INFORMATION
  Report Type: 
  Country: None (occurrence: None)
  Receive Date: 20070607
  Receipt Date: 20070424
  Transmission Date: 20071010
  Serious: Yes (Other)
  Sender: FDA-Public Use
  Company Number: US-PFIZER INC-2006027288

PATIENT
  Sex: Male

DRUGS (3)
  1. BEXTRA [Suspect]
     Indication: OSTEOARTHRITIS
     Route: 048
     Dates: start: 20040309, end: 20050419
  2. DICLOFENAC [Suspect]
     Indication: OSTEOARTHRITIS
     Dates: start: 20050419
  3. NAPROXEN [Suspect]

REACTIONS (6)
  - ACTINIC KERATOSIS [None]
  - BASAL CELL CARCINOMA [None]
  - ECZEMA [None]
  - RASH [None]
  - SEBORRHOEIC DERMATITIS [None]
  - SEBORRHOEIC KERATOSIS [None]
